FAERS Safety Report 16310655 (Version 1)
Quarter: 2019Q2

REPORT INFORMATION
  Report Type: Spontaneous
  Country: GB (occurrence: GB)
  Receive Date: 20190514
  Receipt Date: 20190514
  Transmission Date: 20190711
  Serious: Yes (Other)
  Sender: FDA-Public Use
  Company Number: GB-MYLANLABS-2019M1044880

PATIENT
  Age: 30 Year
  Sex: Male
  Weight: 71 kg

DRUGS (3)
  1. OLANZAPINE. [Concomitant]
     Active Substance: OLANZAPINE
     Dosage: 1 DOSAGE FORM, QD (NIGHT)
     Dates: start: 20161125, end: 20181120
  2. IBUPROFEN. [Suspect]
     Active Substance: IBUPROFEN
     Indication: PRODUCT USED FOR UNKNOWN INDICATION
     Dosage: 200 MILLIGRAM
     Dates: start: 20170119
  3. ARIPIPRAZOLE. [Concomitant]
     Active Substance: ARIPIPRAZOLE
     Dosage: 1 DOSAGE FORM, QD
     Dates: start: 20161125

REACTIONS (2)
  - Swelling face [Unknown]
  - Lip swelling [Unknown]

NARRATIVE: CASE EVENT DATE: 20181123
